FAERS Safety Report 21831097 (Version 1)
Quarter: 2023Q1

REPORT INFORMATION
  Report Type: Spontaneous
  Country: CH (occurrence: CH)
  Receive Date: 20230106
  Receipt Date: 20230106
  Transmission Date: 20230418
  Serious: Yes (Other)
  Sender: FDA-Public Use
  Company Number: None

PATIENT
  Age: 54 Year
  Sex: Male

DRUGS (9)
  1. LORAZEPAM [Interacting]
     Active Substance: LORAZEPAM
     Indication: Thinking abnormal
     Dosage: 1 MG, AS NEEDED IN CASE OF THOUGHT CIRCLES
     Route: 048
  2. CODEINE PHOSPHATE [Suspect]
     Active Substance: CODEINE PHOSPHATE
     Indication: Diarrhoea
     Dosage: 40 DROPS (=25 MG)
     Route: 048
     Dates: start: 20220924
  3. TRAZODONE HYDROCHLORIDE [Suspect]
     Active Substance: TRAZODONE HYDROCHLORIDE
     Dosage: 25 TO 50 MG IN RESERVE IN THE EVENING
     Route: 048
  4. OPIUM TINCTURE [Interacting]
     Active Substance: MORPHINE
     Dosage: 8 DROP, AS NEEDED
     Route: 048
  5. CANDESARTAN [Concomitant]
     Active Substance: CANDESARTAN
     Dosage: 1 DF
     Route: 048
  6. XARELTO [Concomitant]
     Active Substance: RIVAROXABAN
     Dosage: 1 DF, 1X/DAY
     Route: 048
  7. LYSODREN [Concomitant]
     Active Substance: MITOTANE
     Dosage: 1 DF, 1X/DAY
     Route: 048
  8. TORSEMIDE [Concomitant]
     Active Substance: TORSEMIDE
     Dosage: 1 DF, 1X/DAY
     Route: 048
  9. CALCIUM\CHOLECALCIFEROL [Concomitant]
     Active Substance: CALCIUM\CHOLECALCIFEROL
     Dosage: 1 DF, 1X/DAY
     Route: 048

REACTIONS (4)
  - Poisoning [Recovered/Resolved]
  - Fatigue [Recovered/Resolved]
  - Somnolence [Recovered/Resolved]
  - Drug interaction [Unknown]

NARRATIVE: CASE EVENT DATE: 20220924
